FAERS Safety Report 7397993-X (Version None)
Quarter: 2011Q2

REPORT INFORMATION
  Report Type: 
  Country: None (occurrence: None)
  Receive Date: 20110406
  Receipt Date: 20101215
  Transmission Date: 20111010
  Serious: Yes (Hospitalization)
  Sender: FDA-Public Use
  Company Number: US-BAYER-201023661NA

PATIENT
  Sex: Female
  Weight: 123 kg

DRUGS (8)
  1. YAZ [Suspect]
     Indication: CONTRACEPTION
  2. NSAID'S [Concomitant]
  3. PROMETHAZINE - CODEINE [CODEINE PHOSPHATE,PROMETHAZINE HYDROCHLORIDE] [Concomitant]
  4. YASMIN [Suspect]
     Indication: MENSTRUATION IRREGULAR
     Route: 048
     Dates: start: 20070601, end: 20071201
  5. SYNTHROID [Concomitant]
     Dosage: 25 MCG
  6. OCELLA [Suspect]
     Indication: PRODUCT USED FOR UNKNOWN INDICATION
     Route: 048
     Dates: start: 20070601, end: 20071201
  7. ORAL CONTRACEPTIVE NOS [Concomitant]
  8. YAZ [Suspect]
     Indication: MENSTRUATION IRREGULAR
     Dates: start: 20060801, end: 20061101

REACTIONS (2)
  - PULMONARY EMBOLISM [None]
  - DYSPNOEA [None]
